FAERS Safety Report 17831495 (Version 1)
Quarter: 2020Q2

REPORT INFORMATION
  Report Type: Report from Study
  Country: GB (occurrence: GB)
  Receive Date: 20200527
  Receipt Date: 20200527
  Transmission Date: 20200714
  Serious: Yes (Hospitalization, Other)
  Sender: FDA-Public Use
  Company Number: GB-GILEAD-2020-0468922

PATIENT
  Age: 59 Year
  Sex: Female

DRUGS (5)
  1. AXICABTAGENE CILOLEUCEL [Suspect]
     Active Substance: AXICABTAGENE CILOLEUCEL
     Indication: PRIMARY MEDIASTINAL LARGE B-CELL LYMPHOMA
     Dosage: UNK
     Route: 042
  2. AMBISOME [Concomitant]
     Active Substance: AMPHOTERICIN B
  3. PREDNISOLONE. [Concomitant]
     Active Substance: PREDNISOLONE
  4. PENTAMIDINE [PENTAMIDINE ISETHIONATE] [Concomitant]
     Active Substance: PENTAMIDINE ISETHIONATE
  5. ACICLOVIR [Concomitant]
     Active Substance: ACYCLOVIR

REACTIONS (5)
  - Cytopenia [Not Recovered/Not Resolved]
  - Cytokine release syndrome [Unknown]
  - Neurotoxicity [Recovering/Resolving]
  - Bronchiectasis [Unknown]
  - Acute kidney injury [Unknown]
